FAERS Safety Report 10944520 (Version 4)
Quarter: 2015Q3

REPORT INFORMATION
  Report Type: Report from Study
  Country: US (occurrence: US)
  Receive Date: 20150323
  Receipt Date: 20150827
  Transmission Date: 20151125
  Serious: No
  Sender: FDA-Public Use
  Company Number: US-BIOGENIDEC-2015BI036579

PATIENT
  Age: 49 Year
  Sex: Female
  Weight: 53 kg

DRUGS (12)
  1. AMPYRA [Concomitant]
     Active Substance: DALFAMPRIDINE
     Route: 048
  2. TECFIDERA [Suspect]
     Active Substance: DIMETHYL FUMARATE
     Indication: MULTIPLE SCLEROSIS
     Route: 048
     Dates: start: 20131022
  3. AMPYRA [Concomitant]
     Active Substance: DALFAMPRIDINE
     Dates: start: 201503
  4. LITHIUM. [Concomitant]
     Active Substance: LITHIUM
  5. COPAXONE [Concomitant]
     Active Substance: GLATIRAMER ACETATE
     Dates: start: 2010, end: 2013
  6. TECFIDERA [Suspect]
     Active Substance: DIMETHYL FUMARATE
     Indication: MULTIPLE SCLEROSIS
     Route: 048
     Dates: start: 20131015, end: 20131021
  7. AMPYRA [Concomitant]
     Active Substance: DALFAMPRIDINE
     Route: 048
     Dates: start: 20120621, end: 201503
  8. OXYBUTYNIN [Concomitant]
     Active Substance: OXYBUTYNIN
  9. REMERON [Concomitant]
     Active Substance: MIRTAZAPINE
  10. NAPROXEN. [Concomitant]
     Active Substance: NAPROXEN
  11. CLONAZEPAM. [Concomitant]
     Active Substance: CLONAZEPAM
  12. MINOCYCLINE HCL [Concomitant]
     Active Substance: MINOCYCLINE HYDROCHLORIDE

REACTIONS (14)
  - Peripheral swelling [Recovered/Resolved]
  - Pain in extremity [Recovered/Resolved]
  - Dry mouth [Not Recovered/Not Resolved]
  - Rash [Unknown]
  - Dry throat [Not Recovered/Not Resolved]
  - Balance disorder [Recovered/Resolved]
  - Vulvovaginal rash [Unknown]
  - Vulvovaginal pruritus [Unknown]
  - Fall [Recovered/Resolved]
  - Pruritus [Unknown]
  - Hemiparesis [Not Recovered/Not Resolved]
  - Dry eye [Not Recovered/Not Resolved]
  - Drug dose omission [Recovered/Resolved]
  - Flushing [Not Recovered/Not Resolved]

NARRATIVE: CASE EVENT DATE: 201402
